FAERS Safety Report 14660127 (Version 1)
Quarter: 2018Q1

REPORT INFORMATION
  Report Type: Spontaneous
  Country: US (occurrence: US)
  Receive Date: 20180317
  Receipt Date: 20180317
  Transmission Date: 20180509
  Serious: Yes (Other)
  Sender: FDA-Public Use
  Company Number: None

PATIENT
  Age: 56 Year
  Sex: Male
  Weight: 86.18 kg

DRUGS (1)
  1. BUPRENORPHINE HYDROCHLORIDE-NALOXONE [Suspect]
     Active Substance: BUPRENORPHINE HYDROCHLORIDE\NALOXONE HYDROCHLORIDE
     Indication: DRUG DEPENDENCE
     Dosage: DOSE - 4.2/0.7 MG?
     Dates: start: 20180313

REACTIONS (2)
  - Drug level decreased [None]
  - Product solubility abnormal [None]

NARRATIVE: CASE EVENT DATE: 20180313
